FAERS Safety Report 9252733 (Version 1)
Quarter: 2013Q2

REPORT INFORMATION
  Report Type: Spontaneous
  Country: US (occurrence: US)
  Receive Date: 20130424
  Receipt Date: 20130424
  Transmission Date: 20140414
  Serious: Yes (Hospitalization, Other)
  Sender: FDA-Public Use
  Company Number: US-009507513-2009SP020449

PATIENT
  Sex: Female
  Weight: 61.24 kg

DRUGS (5)
  1. NUVARING [Suspect]
     Indication: CONTRACEPTION
     Dosage: 1 DF, QM
     Route: 067
     Dates: start: 20030908, end: 2004
  2. SINGULAIR [Concomitant]
     Indication: ASTHMA
     Dosage: 10 MG, QD
     Route: 048
  3. ALLEGRA [Concomitant]
     Indication: ASTHMA
     Dosage: UNK UNK, QD
  4. PROVENTIL [Concomitant]
     Indication: ASTHMA
     Dosage: UNK UNK, PRN
  5. ADDERALL TABLETS [Concomitant]
     Indication: ATTENTION DEFICIT/HYPERACTIVITY DISORDER
     Dosage: UNK UNK, QD

REACTIONS (8)
  - Thoracic outlet syndrome [Unknown]
  - Raynaud^s phenomenon [Unknown]
  - Deep vein thrombosis [Recovering/Resolving]
  - Thrombosis [Unknown]
  - Asthma [Unknown]
  - Sinusitis [Unknown]
  - Gastrooesophageal reflux disease [Unknown]
  - Infusion site cellulitis [Unknown]
